FAERS Safety Report 5583201-9 (Version None)
Quarter: 2007Q4

REPORT INFORMATION
  Report Type: 
  Country: None (occurrence: None)
  Receive Date: 20071130
  Receipt Date: 20061127
  Transmission Date: 20080405
  Serious: Yes (Disabling, Other)
  Sender: FDA-Public Use
  Company Number: WAES 0611USA06560

PATIENT
  Age: 56 Year
  Sex: Male
  Weight: 96.6162 kg

DRUGS (1)
  1. FOSAMAX [Suspect]
     Indication: OSTEOPOROSIS
     Dosage: PO
     Route: 048
     Dates: start: 20020101, end: 20060101

REACTIONS (1)
  - OSTEONECROSIS [None]
